FAERS Safety Report 5589291-1 (Version None)
Quarter: 2008Q1

REPORT INFORMATION
  Report Type: 
  Country: None (occurrence: None)
  Receive Date: 20080109
  Receipt Date: 20080109
  Transmission Date: 20080703
  Serious: No
  Sender: FDA-Public Use
  Company Number: None

PATIENT

DRUGS (2)
  1. LEVAQUIN [Suspect]
     Indication: SINUSITIS
     Dosage: 500 ONCE QD PO
     Route: 048
     Dates: start: 20071219
  2. AVELOX [Suspect]
     Dosage: 400 ONCE QD PO
     Route: 048
     Dates: start: 20071220

REACTIONS (5)
  - ANXIETY [None]
  - BLOOD PRESSURE INCREASED [None]
  - INSOMNIA [None]
  - PALPITATIONS [None]
  - VISUAL DISTURBANCE [None]
